FAERS Safety Report 8845573 (Version 3)
Quarter: 2013Q1

REPORT INFORMATION
  Report Type: Spontaneous
  Country: FR (occurrence: FR)
  Receive Date: 20121017
  Receipt Date: 20130128
  Transmission Date: 20140127
  Serious: No
  Sender: FDA-Public Use
  Company Number: FR-EISAI INC-E2090-02344-SPO-FR

PATIENT
  Age: 23 Year
  Sex: Female
  Weight: 64 kg

DRUGS (7)
  1. ZONEGRAN [Suspect]
     Indication: JUVENILE MYOCLONIC EPILEPSY
     Dosage: 400 MG/DAY
     Route: 048
     Dates: start: 2009, end: 2012
  2. ZONEGRAN [Suspect]
     Dosage: 300 MG/DAY
     Route: 048
     Dates: start: 2012, end: 2012
  3. ZONEGRAN [Suspect]
     Dosage: 150 MG/DAY
     Route: 048
     Dates: start: 2012
  4. LAMICTAL [Concomitant]
     Dosage: UNKNOWN
     Dates: end: 2012
  5. LAMICTAL [Concomitant]
     Dosage: 500 MG/DAY
     Dates: start: 2012
  6. URBANYL [Concomitant]
     Dosage: UNKNOWN
     Dates: end: 2012
  7. URBANYL [Concomitant]
     Dosage: 15 MG/DAY
     Dates: start: 2012

REACTIONS (2)
  - Nephrolithiasis [Not Recovered/Not Resolved]
  - Off label use [Not Recovered/Not Resolved]
